FAERS Safety Report 5352010-8 (Version None)
Quarter: 2007Q2

REPORT INFORMATION
  Report Type: 
  Country: None (occurrence: None)
  Receive Date: 20070611
  Receipt Date: 20070529
  Transmission Date: 20071010
  Serious: Yes (Hospitalization, Other)
  Sender: FDA-Public Use
  Company Number: PHEH2007US04936

PATIENT
  Age: 38 Year
  Sex: Female
  Weight: 63.492 kg

DRUGS (20)
  1. LIPITOR [Concomitant]
     Indication: BLOOD CHOLESTEROL INCREASED
  2. METOPROLOL SUCCINATE [Concomitant]
     Dosage: 50 MG, UNK
  3. METOPROLOL SUCCINATE [Concomitant]
     Dosage: 25 MG, UNK
     Dates: start: 20070216
  4. PLAVIX [Concomitant]
  5. ASPIRIN [Concomitant]
     Dosage: 81 MG, UNK
  6. LISINOPRIL [Concomitant]
     Indication: HYPERTENSION
  7. WELLBUTRIN [Concomitant]
  8. PROZAC [Concomitant]
  9. DIAZEPAM [Concomitant]
  10. BUSPAR [Concomitant]
  11. ABILIFY [Concomitant]
  12. ZELNORM [Suspect]
     Indication: IRRITABLE BOWEL SYNDROME
     Dosage: 6 MG, BID
     Route: 048
     Dates: start: 20050321, end: 20070410
  13. AMITIZA [Concomitant]
     Dosage: 24 MEQ, UNK
  14. CHANTIX [Concomitant]
  15. LOPRESSOR [Concomitant]
     Dosage: 25 MG, QD
  16. PREMARIN [Concomitant]
  17. MAXZIDE [Concomitant]
  18. LOVASTATIN [Concomitant]
  19. DARVOCET-N 100 [Concomitant]
     Dosage: UNK, PRN
  20. FLUID/ELECTROLYTE REPLACEMENT THERAPY [Concomitant]

REACTIONS (50)
  - ABDOMINAL PAIN [None]
  - ADHESIOLYSIS [None]
  - ASTHMA [None]
  - BACK PAIN [None]
  - BLOOD POTASSIUM DECREASED [None]
  - BLOOD PRESSURE DECREASED [None]
  - BOWEL SOUNDS ABNORMAL [None]
  - CATARACT OPERATION [None]
  - CATHETERISATION CARDIAC [None]
  - CHEST PAIN [None]
  - CHOLECYSTECTOMY [None]
  - CHOLECYSTITIS ACUTE [None]
  - CHOLELITHIASIS [None]
  - CONDITION AGGRAVATED [None]
  - COUGH [None]
  - DEPRESSED MOOD [None]
  - DRUG INEFFECTIVE [None]
  - DRY MOUTH [None]
  - DYSPNOEA EXERTIONAL [None]
  - ECHOCARDIOGRAM ABNORMAL [None]
  - ELECTROCARDIOGRAM ABNORMAL [None]
  - ENDOMETRIOSIS [None]
  - HAEMOGLOBIN DECREASED [None]
  - HEADACHE [None]
  - HYPOTENSION [None]
  - HYSTERECTOMY [None]
  - INSOMNIA [None]
  - INTERMITTENT CLAUDICATION [None]
  - INTRA-UTERINE CONTRACEPTIVE DEVICE INSERTION [None]
  - IRRITABLE BOWEL SYNDROME [None]
  - MENSTRUAL DISORDER [None]
  - MYOCARDIAL INFARCTION [None]
  - NAUSEA [None]
  - OEDEMA [None]
  - OSTEOPOROSIS [None]
  - PAIN IN EXTREMITY [None]
  - PELVIC INFLAMMATORY DISEASE [None]
  - PELVIC PERITONEAL ADHESIONS [None]
  - PERIPHERAL VASCULAR DISORDER [None]
  - PLATELET COUNT INCREASED [None]
  - POSTOPERATIVE ILEUS [None]
  - RHONCHI [None]
  - SALPINGO-OOPHORECTOMY BILATERAL [None]
  - SINUSITIS [None]
  - TACHYCARDIA [None]
  - VASCULAR OCCLUSION [None]
  - VASOSPASM [None]
  - VOMITING [None]
  - WHEEZING [None]
  - WHITE BLOOD CELL COUNT INCREASED [None]
